FAERS Safety Report 20898921 (Version 1)
Quarter: 2022Q2

REPORT INFORMATION
  Report Type: Spontaneous
  Country: CN (occurrence: None)
  Receive Date: 20220601
  Receipt Date: 20220601
  Transmission Date: 20220721
  Serious: Yes (Other)
  Sender: FDA-Public Use
  Company Number: CN-ROCHE-3106054

PATIENT
  Age: 68 Year
  Sex: Male

DRUGS (19)
  1. RITUXIMAB [Suspect]
     Active Substance: RITUXIMAB
     Indication: Mantle cell lymphoma
     Route: 065
     Dates: start: 201705, end: 201709
  2. RITUXIMAB [Suspect]
     Active Substance: RITUXIMAB
     Route: 065
     Dates: start: 20210915
  3. RITUXIMAB [Suspect]
     Active Substance: RITUXIMAB
     Route: 065
     Dates: start: 20211018
  4. VENETOCLAX [Suspect]
     Active Substance: VENETOCLAX
     Indication: Mantle cell lymphoma
     Route: 065
     Dates: start: 202102, end: 202108
  5. TOCILIZUMAB [Concomitant]
     Active Substance: TOCILIZUMAB
     Indication: Cytokine release syndrome
     Route: 065
  6. CYCLOPHOSPHAMIDE [Concomitant]
     Active Substance: CYCLOPHOSPHAMIDE
     Indication: Mantle cell lymphoma
     Dosage: R-CHOP
     Dates: start: 201705, end: 201709
  7. DOXORUBICIN [Concomitant]
     Active Substance: DOXORUBICIN
     Indication: Mantle cell lymphoma
     Dosage: R-CHOP
     Dates: start: 201705, end: 201709
  8. VINCRISTINE [Concomitant]
     Active Substance: VINCRISTINE
     Indication: Mantle cell lymphoma
     Dosage: R-CHOP
     Dates: start: 201705, end: 201709
  9. PREDNISONE [Concomitant]
     Active Substance: PREDNISONE
     Indication: Mantle cell lymphoma
     Dosage: R-CHOP
     Dates: start: 201705, end: 201709
  10. ORELABRUTINIB [Concomitant]
     Active Substance: ORELABRUTINIB
     Indication: Mantle cell lymphoma
     Dates: start: 201901, end: 202004
  11. IBRUTINIB [Concomitant]
     Active Substance: IBRUTINIB
     Indication: Mantle cell lymphoma
     Dosage: 22D
     Route: 048
     Dates: start: 202005
  12. ZANUBRUTINIB [Concomitant]
     Active Substance: ZANUBRUTINIB
     Indication: Mantle cell lymphoma
     Route: 048
     Dates: start: 202006, end: 202102
  13. ZANUBRUTINIB [Concomitant]
     Active Substance: ZANUBRUTINIB
     Route: 048
     Dates: start: 202102, end: 202108
  14. ZANUBRUTINIB [Concomitant]
     Active Substance: ZANUBRUTINIB
     Dates: start: 20210915
  15. FLUOROURACIL [Concomitant]
     Active Substance: FLUOROURACIL
     Indication: Mantle cell lymphoma
     Dates: start: 20211014, end: 20211016
  16. CARBOPLATIN [Concomitant]
     Active Substance: CARBOPLATIN
     Indication: Mantle cell lymphoma
     Dates: start: 20211014, end: 20211016
  17. DEXAMETHASONE [Concomitant]
     Active Substance: DEXAMETHASONE
     Indication: Mantle cell lymphoma
     Dosage: 4D
     Dates: start: 20211020, end: 20211023
  18. BAI ZHU [Concomitant]
     Indication: Mantle cell lymphoma
     Dates: start: 20211020, end: 20211023
  19. BENDAMUSTINE [Concomitant]
     Active Substance: BENDAMUSTINE
     Indication: Mantle cell lymphoma
     Dosage: 2D
     Dates: start: 20211027, end: 20211028

REACTIONS (2)
  - Cytokine release syndrome [Unknown]
  - Off label use [Unknown]
